FAERS Safety Report 6697351-7 (Version None)
Quarter: 2010Q2

REPORT INFORMATION
  Report Type: 
  Country: None (occurrence: None)
  Receive Date: 20100426
  Receipt Date: 20100412
  Transmission Date: 20101027
  Serious: Yes (Hospitalization)
  Sender: FDA-Public Use
  Company Number: GB-MYLANLABS-2010S1006142

PATIENT
  Age: 36 Year
  Sex: Male

DRUGS (3)
  1. CISPLATIN [Suspect]
     Indication: TESTICULAR EMBRYONAL CARCINOMA
     Route: 065
  2. BLEOMYCIN [Suspect]
     Indication: TESTICULAR EMBRYONAL CARCINOMA
     Route: 065
  3. ETOPOSIDE [Suspect]
     Indication: TESTICULAR EMBRYONAL CARCINOMA
     Route: 065

REACTIONS (2)
  - CAROTID ARTERY THROMBOSIS [None]
  - PULMONARY EMBOLISM [None]
